FAERS Safety Report 22313467 (Version 1)
Quarter: 2023Q2

REPORT INFORMATION
  Report Type: Spontaneous
  Country: JP (occurrence: JP)
  Receive Date: 20230512
  Receipt Date: 20230512
  Transmission Date: 20230722
  Serious: Yes (Other)
  Sender: FDA-Public Use
  Company Number: JP-SUN PHARMACEUTICAL INDUSTRIES LTD-2023RR-387976

PATIENT
  Age: 63 Year
  Sex: Male

DRUGS (2)
  1. SUNITINIB [Suspect]
     Active Substance: SUNITINIB
     Indication: Metastatic renal cell carcinoma
     Dosage: 50 MILLIGRAM, DAILY, FOR 2 WEEKS ON AND 1 WEEK OFF
     Route: 065
  2. METHYLPREDNISOLONE [Suspect]
     Active Substance: METHYLPREDNISOLONE
     Indication: Metastatic renal cell carcinoma
     Dosage: 500 MILLIGRAM
     Route: 065

REACTIONS (2)
  - Disease progression [Recovering/Resolving]
  - Therapeutic product effect incomplete [Unknown]
